FAERS Safety Report 6972443-3 (Version None)
Quarter: 2010Q3

REPORT INFORMATION
  Report Type: 
  Country: None (occurrence: None)
  Receive Date: 20100909
  Receipt Date: 20100827
  Transmission Date: 20110219
  Serious: Yes (Hospitalization)
  Sender: FDA-Public Use
  Company Number: PHBS2007JP11008

PATIENT
  Age: 7 Year
  Sex: Male

DRUGS (5)
  1. NEORAL [Suspect]
     Indication: NEPHROTIC SYNDROME
     Route: 048
  2. NIFEDIPINE [Concomitant]
  3. ENALAPRIL MALEATE [Concomitant]
  4. STEROIDS NOS [Concomitant]
  5. PREDNISOLONE [Concomitant]
     Indication: NEPHROTIC SYNDROME
     Route: 048

REACTIONS (10)
  - BLINDNESS CORTICAL [None]
  - BRAIN OEDEMA [None]
  - DEPRESSED LEVEL OF CONSCIOUSNESS [None]
  - GRAND MAL CONVULSION [None]
  - HYPERTENSION [None]
  - HYPERTENSIVE ENCEPHALOPATHY [None]
  - NUCLEAR MAGNETIC RESONANCE IMAGING ABNORMAL [None]
  - REVERSIBLE POSTERIOR LEUKOENCEPHALOPATHY SYNDROME [None]
  - STATUS EPILEPTICUS [None]
  - VISUAL IMPAIRMENT [None]
